FAERS Safety Report 6451130-4 (Version None)
Quarter: 2009Q4

REPORT INFORMATION
  Report Type: 
  Country: None (occurrence: None)
  Receive Date: 20091123
  Receipt Date: 20091112
  Transmission Date: 20100525
  Serious: Yes (Other)
  Sender: FDA-Public Use
  Company Number: US-PFIZER INC-2009298993

PATIENT
  Sex: Female

DRUGS (4)
  1. LIPITOR [Suspect]
     Indication: BLOOD CHOLESTEROL INCREASED
     Dosage: 10 MG, 1X/DAY
     Dates: start: 20010601, end: 20090723
  2. LIPITOR [Interacting]
     Indication: PROPHYLAXIS
  3. PRILOSEC [Interacting]
     Indication: GASTROINTESTINAL DISORDER
     Dosage: UNK
     Dates: start: 20090601
  4. PRILOSEC [Interacting]
     Indication: ABDOMINAL DISCOMFORT

REACTIONS (7)
  - ABDOMINAL DISCOMFORT [None]
  - BLOOD CHOLESTEROL INCREASED [None]
  - BLOOD PRESSURE INCREASED [None]
  - DRUG INTERACTION [None]
  - DYSPEPSIA [None]
  - HEPATIC ENZYME INCREASED [None]
  - LOW DENSITY LIPOPROTEIN INCREASED [None]
